FAERS Safety Report 20041451 (Version 1)
Quarter: 2021Q4

REPORT INFORMATION
  Report Type: Spontaneous
  Country: PT (occurrence: PT)
  Receive Date: 20211108
  Receipt Date: 20211108
  Transmission Date: 20220303
  Serious: Yes (Hospitalization, Other)
  Sender: FDA-Public Use
  Company Number: PT-009507513-2111PRT001472

PATIENT
  Age: 71 Year
  Sex: Male

DRUGS (1)
  1. PEMBROLIZUMAB [Suspect]
     Active Substance: PEMBROLIZUMAB
     Dosage: 5 CYCLES
     Dates: start: 202012, end: 202103

REACTIONS (5)
  - Nephritis [Unknown]
  - Renal impairment [Unknown]
  - Hypothyroidism [Unknown]
  - Asthenia [Unknown]
  - Disorientation [Unknown]

NARRATIVE: CASE EVENT DATE: 20210401
